FAERS Safety Report 15138885 (Version 1)
Quarter: 2018Q3

REPORT INFORMATION
  Report Type: Spontaneous
  Country: AU (occurrence: AU)
  Receive Date: 20180713
  Receipt Date: 20180713
  Transmission Date: 20181010
  Serious: Yes (Other)
  Sender: FDA-Public Use
  Company Number: AU-TEVA-2018-AU-924689

PATIENT
  Age: 58 Year
  Sex: Male

DRUGS (1)
  1. QUETIAPINE FUMARATE. [Suspect]
     Active Substance: QUETIAPINE FUMARATE
     Route: 065

REACTIONS (22)
  - Escherichia infection [Unknown]
  - Schizophrenia [Unknown]
  - Conduction disorder [Unknown]
  - Hypertension [Unknown]
  - Ventricular tachycardia [Unknown]
  - Eosinophil count increased [Unknown]
  - Mitral valve incompetence [Unknown]
  - Platelet count decreased [Unknown]
  - Renal disorder [Unknown]
  - Slow speech [Unknown]
  - Cerebral atrophy [Unknown]
  - Extrapyramidal disorder [Unknown]
  - Muscle rigidity [Unknown]
  - Tricuspid valve incompetence [Unknown]
  - Blood cholesterol decreased [Unknown]
  - Lymphocyte count decreased [Unknown]
  - Total cholesterol/HDL ratio increased [Unknown]
  - Blood triglycerides increased [Unknown]
  - High density lipoprotein decreased [Unknown]
  - Left ventricular hypertrophy [Unknown]
  - Parkinsonian rest tremor [Unknown]
  - Blood alkaline phosphatase increased [Unknown]
